FAERS Safety Report 22653722 (Version 1)
Quarter: 2023Q2

REPORT INFORMATION
  Report Type: Spontaneous
  Country: US (occurrence: US)
  Receive Date: 20230629
  Receipt Date: 20230629
  Transmission Date: 20230721
  Serious: Yes (Hospitalization)
  Sender: FDA-Public Use
  Company Number: US-ORG100016242-2023000191

PATIENT
  Age: 71 Year
  Sex: Female

DRUGS (1)
  1. ZILRETTA [Suspect]
     Active Substance: TRIAMCINOLONE ACETONIDE
     Indication: Osteoarthritis
     Dosage: 1 DOSAGE FORM, 1 TOTAL, EXP DATE NOV2023
     Route: 014
     Dates: start: 20230517, end: 20230517

REACTIONS (1)
  - Escherichia urinary tract infection [Unknown]

NARRATIVE: CASE EVENT DATE: 20230601
